FAERS Safety Report 24064670 (Version 4)
Quarter: 2024Q4

REPORT INFORMATION
  Report Type: Spontaneous
  Country: US (occurrence: US)
  Receive Date: 20240709
  Receipt Date: 20241008
  Transmission Date: 20250115
  Serious: No
  Sender: PFIZER
  Company Number: US-PFIZER INC-202400205535

PATIENT
  Age: 9 Year
  Sex: Female
  Weight: 27.211 kg

DRUGS (9)
  1. GENOTROPIN [Suspect]
     Active Substance: SOMATROPIN
     Indication: Growth hormone deficiency
     Dosage: 0.7 MG, 1X/DAY
     Route: 058
     Dates: start: 20240514
  2. MEMANTINE [Concomitant]
     Active Substance: MEMANTINE
     Indication: Nervous system disorder prophylaxis
     Dosage: 1 DF, 2X/DAY
  3. BOSWELLIA EXTRAKT 400MG [Concomitant]
     Indication: Nervous system disorder prophylaxis
     Dosage: 500 MG IN THE MORNING
  4. BOSWELLIA EXTRAKT 400MG [Concomitant]
     Dosage: 1000 MG, IN THE EVENING
  5. BOSWELLIA EXTRAKT 400MG [Concomitant]
     Dosage: 500 UNITS, 1 TAB AM, 2 TAB PM
  6. VITAMIN D3 [Concomitant]
     Active Substance: CHOLECALCIFEROL
     Indication: Vitamin D deficiency
     Dosage: 2 DF, WEEKLY, 5000 UNITS, WEEKLY
  7. VITAMIN E [Concomitant]
     Active Substance: .ALPHA.-TOCOPHEROL
     Indication: Vitamin E deficiency
     Dosage: 400 UNITS 1 CAP ONCE DAILY
  8. IRON\VITAMINS [Concomitant]
     Active Substance: IRON\VITAMINS
     Indication: Hypovitaminosis
     Dosage: 1 DF, 1X/DAY
  9. CALCIUM CARBONATE [Concomitant]
     Active Substance: CALCIUM CARBONATE
     Indication: Supplementation therapy
     Dosage: 0.5 DF, 1X/DAY (ONE HALF TABLET ONCE DAILY)

REACTIONS (3)
  - Drug dose omission by device [Unknown]
  - Wrong technique in device usage process [Unknown]
  - Device leakage [Unknown]

NARRATIVE: CASE EVENT DATE: 20240701
